FAERS Safety Report 6542314-5 (Version None)
Quarter: 2010Q1

REPORT INFORMATION
  Report Type: 
  Country: None (occurrence: None)
  Receive Date: 20100119
  Receipt Date: 20100106
  Transmission Date: 20100710
  Serious: Yes (Hospitalization)
  Sender: FDA-Public Use
  Company Number: JP-MERCK-0907USA03898

PATIENT
  Age: 40 Year
  Sex: Male
  Weight: 58 kg

DRUGS (1)
  1. PROPECIA [Suspect]
     Indication: ALOPECIA
     Route: 048
     Dates: start: 20090610, end: 20090629

REACTIONS (1)
  - CHOLESTASIS [None]
